FAERS Safety Report 11503971 (Version 2)
Quarter: 2016Q2

REPORT INFORMATION
  Report Type: Spontaneous
  Country: US (occurrence: US)
  Receive Date: 20150914
  Receipt Date: 20160412
  Transmission Date: 20160815
  Serious: Yes (Other)
  Sender: FDA-Public Use
  Company Number: US-MDT-ADR-2015-01779

PATIENT
  Age: 25 Year
  Sex: Female

DRUGS (1)
  1. BACLOFEN. [Suspect]
     Active Substance: BACLOFEN
     Dosage: 698.9 MCG/DAY
     Route: 037

REACTIONS (2)
  - Muscle spasticity [Unknown]
  - Therapeutic response decreased [Unknown]
